FAERS Safety Report 8779248 (Version 1)
Quarter: 2012Q4

REPORT INFORMATION
  Report Type: 
  Country: DE (occurrence: JP)
  Receive Date: 20120912
  Receipt Date: 20120912
  Transmission Date: 20130627
  Serious: Yes (Other)
  Sender: FDA-Public Use
  Company Number: JP-BRISTOL-MYERS SQUIBB COMPANY-16932972

PATIENT
  Age: 81 Year
  Sex: Female

DRUGS (6)
  1. METFORMIN HYDROCHLORIDE [Suspect]
     Indication: DIABETES MELLITUS
     Route: 048
     Dates: end: 20120717
  2. VILDAGLIPTIN [Concomitant]
     Route: 048
  3. SEIBULE [Concomitant]
     Route: 048
  4. CALBLOCK [Concomitant]
     Route: 048
  5. NATRIX [Concomitant]
     Route: 048
  6. OLMETEC [Concomitant]
     Route: 048

REACTIONS (1)
  - Renal impairment [Recovered/Resolved]
